FAERS Safety Report 9826993 (Version 1)
Quarter: 2014Q1

REPORT INFORMATION
  Report Type: Spontaneous
  Country: US (occurrence: US)
  Receive Date: 20140117
  Receipt Date: 20140117
  Transmission Date: 20141002
  Serious: No
  Sender: FDA-Public Use
  Company Number: US-GLAXOSMITHKLINE-A1024049A

PATIENT
  Age: 59 Year
  Sex: Male
  Weight: 109.5 kg

DRUGS (15)
  1. PROMACTA [Suspect]
     Indication: THROMBOCYTOPENIA
     Dosage: 25MG PER DAY
     Route: 048
     Dates: start: 20130425, end: 20130426
  2. RIBAVIRIN [Concomitant]
  3. CALCIUM [Concomitant]
  4. MAGNESIUM [Concomitant]
  5. PROGRAF [Concomitant]
  6. ASPIRIN [Concomitant]
  7. ALLOPURINOL [Concomitant]
  8. FLUTICASONE [Concomitant]
  9. HUMALOG [Concomitant]
  10. HYDROXYZINE [Concomitant]
  11. FEXOFENADINE [Concomitant]
  12. NEXIUM [Concomitant]
  13. PROCRIT [Concomitant]
  14. PEGASYS [Concomitant]
     Dates: start: 20130114
  15. RIBAVIRAN [Concomitant]
     Dates: start: 20130114

REACTIONS (2)
  - Urticaria [Recovered/Resolved]
  - Rash pruritic [Recovered/Resolved]
